FAERS Safety Report 19027933 (Version 1)
Quarter: 2021Q1

REPORT INFORMATION
  Report Type: Spontaneous
  Country: US (occurrence: US)
  Receive Date: 20210319
  Receipt Date: 20210319
  Transmission Date: 20210420
  Serious: Yes (Life-Threatening, Hospitalization, Other)
  Sender: FDA-Public Use
  Company Number: US-AMGEN-USASP2021040328

PATIENT

DRUGS (3)
  1. TRANEXAMIC ACID. [Concomitant]
     Active Substance: TRANEXAMIC ACID
     Dosage: UNK (40 MG/KG AS LOADING DOSE, 10 UNITS/KG/H INTRAOPERATIVELY FOLLOWED BY 10 MG/KG EVERY 8 H FOR 3 D
     Route: 042
  2. FERROUS SULFATE. [Concomitant]
     Active Substance: FERROUS SULFATE
     Dosage: UNK
  3. EPOETIN ALFA [Suspect]
     Active Substance: ERYTHROPOIETIN
     Indication: ANAEMIA
     Dosage: UNK, QWK (600 UNITS/KG)
     Route: 058

REACTIONS (2)
  - Pseudomonas infection [Unknown]
  - Arrhythmia [Unknown]
